FAERS Safety Report 19885072 (Version 1)
Quarter: 2021Q3

REPORT INFORMATION
  Report Type: Spontaneous
  Country: US (occurrence: US)
  Receive Date: 20210924
  Receipt Date: 20210924
  Transmission Date: 20211014
  Serious: No
  Sender: FDA-Public Use
  Company Number: None

PATIENT

DRUGS (1)
  1. KUSH BURST THC GUMMIES PINEAPPLE PUNCH (DELTA 8) ? [Suspect]
     Active Substance: .DELTA.8-TETRAHYDROCANNABINOL\HERBALS
     Dosage: TOOK A COUPLE TIMES AWEEK

REACTIONS (4)
  - Disturbance in attention [None]
  - Anxiety [None]
  - Chest pain [None]
  - Panic attack [None]

NARRATIVE: CASE EVENT DATE: 20210918
